FAERS Safety Report 24659922 (Version 1)
Quarter: 2024Q4

REPORT INFORMATION
  Report Type: Spontaneous
  Country: GB (occurrence: GB)
  Receive Date: 20241125
  Receipt Date: 20241125
  Transmission Date: 20250115
  Serious: Yes (Other)
  Sender: PERRIGO
  Company Number: None

PATIENT
  Age: 77 Year
  Sex: Female
  Weight: 50 kg

DRUGS (17)
  1. ESOMEPRAZOLE [Suspect]
     Active Substance: ESOMEPRAZOLE
     Indication: Product used for unknown indication
     Dosage: 20MG GASTRO-RESISTANT CAPSULES
     Route: 065
  2. POLYETHYLENE GLYCOL 3350\POTASSIUM CHLORIDE\SODIUM BICARBONATE\SODIUM [Concomitant]
     Active Substance: POLYETHYLENE GLYCOL 3350\POTASSIUM CHLORIDE\SODIUM BICARBONATE\SODIUM CHLORIDE
     Indication: Ill-defined disorder
     Dosage: TAKE ONE OR TWO SACHETS DISSOLVED IN WATER (125...
     Dates: start: 20241112
  3. VAGIRUX [Concomitant]
     Indication: Ill-defined disorder
     Dosage: INITIAL DOSE: INSERT ONE TABLET  INTO THE VAGIN...
     Dates: start: 20241107
  4. FEXOFENADINE [Concomitant]
     Active Substance: FEXOFENADINE HYDROCHLORIDE
     Indication: Ill-defined disorder
     Dosage: ONE TABLET TO BE TAKEN ONCE A DAY  FOR CHRONIC ...
     Dates: start: 20241112
  5. ALOGLIPTIN [Concomitant]
     Active Substance: ALOGLIPTIN
     Indication: Ill-defined disorder
     Dosage: ONE TABLET TO BE TAKEN ONCE A DAY
     Dates: start: 20240116
  6. AMLODIPINE [Concomitant]
     Active Substance: AMLODIPINE BESYLATE
     Indication: Ill-defined disorder
     Dosage: ONE TABLET TO BE TAKEN ONCE A DAY IN THE MORNIN...
     Dates: start: 20240116
  7. ASPIRIN [Concomitant]
     Active Substance: ASPIRIN
     Indication: Ill-defined disorder
     Dosage: TAKE ONE TABLET EVERY DAY
     Dates: start: 20240116
  8. ATORVASTATIN [Concomitant]
     Active Substance: ATORVASTATIN
     Indication: Ill-defined disorder
     Dosage: TAKE ONE TABLET EVERY NIGHT
     Dates: start: 20240116
  9. BISOPROLOL [Concomitant]
     Active Substance: BISOPROLOL
     Indication: Ill-defined disorder
     Dosage: ONE TABLET TO BE TAKEN EACH MORNING
     Dates: start: 20240116
  10. EMPAGLIFLOZIN [Concomitant]
     Active Substance: EMPAGLIFLOZIN
     Indication: Diabetes mellitus
     Dosage: TAKE ONE TABLET EVERY DAY, FOR DIABETES
     Dates: start: 20240116
  11. NITROGLYCERIN [Concomitant]
     Active Substance: NITROGLYCERIN
     Indication: Ill-defined disorder
     Dosage: USE ONE SPRAY UNDER THE TONGUE EVERY FIVE MINUT...
     Dates: start: 20240116
  12. LANSOPRAZOLE [Concomitant]
     Active Substance: LANSOPRAZOLE
     Indication: Ill-defined disorder
     Dosage: ONE CAPSULE TO BE TAKEN ONCE A DAY
     Dates: start: 20240116
  13. METFORMIN [Concomitant]
     Active Substance: METFORMIN HYDROCHLORIDE
     Indication: Ill-defined disorder
     Dosage: TAKE TWO TABLETS TWICE A DAY (BREAKFAST AND SUP...
     Dates: start: 20240116
  14. ISOSORBIDE MONONITRATE [Concomitant]
     Active Substance: ISOSORBIDE MONONITRATE
     Indication: Ill-defined disorder
     Dosage: HALF A TABLET TO BE TAKEN ONCE A DAY IN THE MOR...
     Dates: start: 20240118, end: 20240903
  15. RANOLAZINE [Concomitant]
     Active Substance: RANOLAZINE
     Indication: Ill-defined disorder
     Dosage: ONE TABLET TO BE TAKEN TWICE A DAY AS DIRECTED
     Dates: start: 20240118
  16. TICAGRELOR [Concomitant]
     Active Substance: TICAGRELOR
     Indication: Ill-defined disorder
     Dosage: ONE TABLET TO BE TAKEN TWICE A DAY
     Dates: start: 20240118
  17. ISOSORBIDE MONONITRATE [Concomitant]
     Active Substance: ISOSORBIDE MONONITRATE
     Indication: Ill-defined disorder
     Dosage: HALF A TABLET TO BE TAKEN ONCE A DAY IN THE MOR...
     Dates: start: 20240903

REACTIONS (1)
  - Angioedema [Recovered/Resolved]
